FAERS Safety Report 6389290-6 (Version None)
Quarter: 2009Q4

REPORT INFORMATION
  Report Type: 
  Country: None (occurrence: None)
  Receive Date: 20091006
  Receipt Date: 20090930
  Transmission Date: 20100525
  Serious: Yes (Life-Threatening, Other)
  Sender: FDA-Public Use
  Company Number: PHEH2009US12698

PATIENT
  Sex: Male

DRUGS (2)
  1. EXJADE [Suspect]
     Dosage: 2000 MG, UNK
     Route: 048
  2. EXJADE [Suspect]
     Dosage: DOSE REDUCED
     Dates: end: 20090909

REACTIONS (12)
  - CHROMATURIA [None]
  - DIARRHOEA [None]
  - FAECES DISCOLOURED [None]
  - HYPOPHAGIA [None]
  - MENTAL STATUS CHANGES [None]
  - NAUSEA [None]
  - PYREXIA [None]
  - QUALITY OF LIFE DECREASED [None]
  - SUICIDAL IDEATION [None]
  - TENSION HEADACHE [None]
  - VOMITING [None]
  - WEIGHT DECREASED [None]
